FAERS Safety Report 5440920-2 (Version None)
Quarter: 2007Q3

REPORT INFORMATION
  Report Type: 
  Country: None (occurrence: None)
  Receive Date: 20070831
  Receipt Date: 20070820
  Transmission Date: 20080115
  Serious: Yes (Other)
  Sender: FDA-Public Use
  Company Number: US-PFIZER INC-2006124048

PATIENT
  Sex: Male

DRUGS (5)
  1. LIPITOR [Suspect]
  2. HYDROCHLOROTHIAZIDE [Concomitant]
  3. FLUOXETINE [Concomitant]
  4. LISINOPRIL [Concomitant]
  5. LISINOPRIL [Concomitant]

REACTIONS (8)
  - AMNESIA [None]
  - ASTHENIA [None]
  - COGNITIVE DISORDER [None]
  - DEPRESSION [None]
  - DISORIENTATION [None]
  - FATIGUE [None]
  - MYOPATHY [None]
  - NEUROPATHY PERIPHERAL [None]
